FAERS Safety Report 13367093 (Version 1)
Quarter: 2017Q1

REPORT INFORMATION
  Report Type: Report from Study
  Country: US (occurrence: US)
  Receive Date: 20170324
  Receipt Date: 20170324
  Transmission Date: 20170429
  Serious: Yes (Hospitalization, Other)
  Sender: FDA-Public Use
  Company Number: US-AMGEN-USASL2017043774

PATIENT
  Sex: Female

DRUGS (1)
  1. ENBREL [Suspect]
     Active Substance: ETANERCEPT
     Indication: RHEUMATOID ARTHRITIS
     Dosage: 50 MG, 2 TIMES/WK
     Route: 065

REACTIONS (7)
  - Wound [Not Recovered/Not Resolved]
  - Hepatic enzyme increased [Unknown]
  - Intentional product misuse [Unknown]
  - Rash macular [Not Recovered/Not Resolved]
  - Pneumonia [Unknown]
  - Arthralgia [Unknown]
  - Foot deformity [Unknown]

NARRATIVE: CASE EVENT DATE: 2008
